FAERS Safety Report 25626142 (Version 2)
Quarter: 2025Q3

REPORT INFORMATION
  Report Type: Spontaneous
  Country: US (occurrence: US)
  Receive Date: 20250731
  Receipt Date: 20250815
  Transmission Date: 20251020
  Serious: Yes (Death, Hospitalization, Other)
  Sender: ALEXION PHARMACEUTICALS
  Company Number: US-AstraZeneca-CH-00920918A

PATIENT
  Age: 65 Year
  Sex: Male
  Weight: 74.5 kg

DRUGS (1)
  1. CALQUENCE [Suspect]
     Active Substance: ACALABRUTINIB
     Indication: Chronic lymphocytic leukaemia
     Dosage: 100 MILLIGRAM, BID
     Dates: start: 20250715

REACTIONS (34)
  - Myocardial infarction [Fatal]
  - Cardiac arrest [Fatal]
  - Abdominal pain [Unknown]
  - Vomiting [Unknown]
  - Nephrolithiasis [Unknown]
  - Multifocal fibrosclerosis [Unknown]
  - Urinary retention [Unknown]
  - Hypovolaemia [Unknown]
  - Hypernatraemia [Unknown]
  - Blood bilirubin abnormal [Unknown]
  - Lactic acidosis [Unknown]
  - Pleural effusion [Unknown]
  - Atelectasis [Unknown]
  - Liver disorder [Unknown]
  - Hiatus hernia [Unknown]
  - Abdominal distension [Unknown]
  - Lymphadenopathy [Unknown]
  - Arteriosclerosis [Unknown]
  - Benign prostatic hyperplasia [Unknown]
  - Hepatomegaly [Unknown]
  - Prostatomegaly [Unknown]
  - Emphysema [Unknown]
  - Nausea [Unknown]
  - Gastrointestinal tube insertion [Unknown]
  - Abdominal pain upper [Unknown]
  - Dyspnoea [Unknown]
  - Gastric fluid analysis abnormal [Unknown]
  - Abdominal discomfort [Unknown]
  - Neutrophil count abnormal [Unknown]
  - Lymphocyte count abnormal [Unknown]
  - Diarrhoea [Unknown]
  - Blood urea increased [Unknown]
  - Neutrophil count [Unknown]
  - Headache [Unknown]

NARRATIVE: CASE EVENT DATE: 20250726
